FAERS Safety Report 17917238 (Version 1)
Quarter: 2020Q2

REPORT INFORMATION
  Report Type: Spontaneous
  Country: GB (occurrence: GB)
  Receive Date: 20200619
  Receipt Date: 20200619
  Transmission Date: 20200714
  Serious: Yes (Other)
  Sender: FDA-Public Use
  Company Number: GB-PFIZER INC-2020235901

PATIENT
  Age: 71 Year
  Sex: Male
  Weight: 69.85 kg

DRUGS (2)
  1. LEVOTHYROXINE. [Concomitant]
     Active Substance: LEVOTHYROXINE
     Dosage: UNK
  2. FLUCONAZOLE. [Suspect]
     Active Substance: FLUCONAZOLE
     Indication: PRURITUS
     Dosage: 50 MG (14 DAY COURSE PRESCRIBED)
     Route: 048
     Dates: start: 20200530, end: 20200530

REACTIONS (3)
  - Dizziness [Recovered/Resolved with Sequelae]
  - Balance disorder [Unknown]
  - Panic reaction [Unknown]

NARRATIVE: CASE EVENT DATE: 20200530
